FAERS Safety Report 10237843 (Version 2)
Quarter: 2014Q2

REPORT INFORMATION
  Report Type: Spontaneous
  Country: BR (occurrence: BR)
  Receive Date: 20140616
  Receipt Date: 20140616
  Transmission Date: 20141212
  Serious: Yes (Other)
  Sender: FDA-Public Use
  Company Number: BR-BIOGENIDEC-2014BI039070

PATIENT
  Age: 15 Year
  Sex: Female

DRUGS (4)
  1. AVONEX [Suspect]
     Indication: MULTIPLE SCLEROSIS
     Route: 030
     Dates: start: 2002
  2. AVONEX [Suspect]
     Indication: MULTIPLE SCLEROSIS
     Route: 030
     Dates: start: 20140404
  3. GLAUTIMOL (TIMOLOL) [Concomitant]
     Indication: INTRAOCULAR PRESSURE TEST ABNORMAL
     Dates: start: 2007
  4. MACRODANTINA [Concomitant]
     Indication: PROPHYLAXIS URINARY TRACT INFECTION
     Dates: start: 2010

REACTIONS (7)
  - Tuberculosis [Unknown]
  - Discomfort [Not Recovered/Not Resolved]
  - Gamma-glutamyltransferase abnormal [Not Recovered/Not Resolved]
  - Blood triglycerides increased [Not Recovered/Not Resolved]
  - Headache [Not Recovered/Not Resolved]
  - Injection site pain [Unknown]
  - Arthralgia [Not Recovered/Not Resolved]
